FAERS Safety Report 18653970 (Version 1)
Quarter: 2020Q4

REPORT INFORMATION
  Report Type: Report from Study
  Country: US (occurrence: US)
  Receive Date: 20201223
  Receipt Date: 20201223
  Transmission Date: 20210114
  Serious: Yes (Hospitalization, Other)
  Sender: FDA-Public Use
  Company Number: US-GILEAD-2020-0510236

PATIENT
  Age: 23 Year
  Sex: Female

DRUGS (20)
  1. VITAMINS NOS [Concomitant]
     Active Substance: VITAMINS
  2. CIPROFLOXACIN. [Concomitant]
     Active Substance: CIPROFLOXACIN
  3. METOLAZONE. [Concomitant]
     Active Substance: METOLAZONE
  4. PEG 3350 + ELECTROLYTES [Concomitant]
  5. AZTREONAM LYSINE [Suspect]
     Active Substance: AZTREONAM LYSINE
     Indication: CYSTIC FIBROSIS
     Dosage: 75 MG, TID 28 DAYS ON THEN 28 DAYS OFF
     Route: 055
     Dates: start: 20191215, end: 202011
  6. LACTULOSE. [Concomitant]
     Active Substance: LACTULOSE
  7. TORSEMIDE. [Concomitant]
     Active Substance: TORSEMIDE
  8. TRIKAFTA [Concomitant]
     Active Substance: ELEXACAFTOR\IVACAFTOR\TEZACAFTOR
  9. VITAMIN D3 [Concomitant]
     Active Substance: CHOLECALCIFEROL
  10. ZYRTEC [Concomitant]
     Active Substance: CETIRIZINE HYDROCHLORIDE
  11. LISINOPRIL. [Concomitant]
     Active Substance: LISINOPRIL
  12. MIDODRINE [Concomitant]
     Active Substance: MIDODRINE
  13. NOVOLOG [Concomitant]
     Active Substance: INSULIN ASPART
  14. SPIRONOLACTONE. [Concomitant]
     Active Substance: SPIRONOLACTONE
  15. URSODIOL. [Concomitant]
     Active Substance: URSODIOL
  16. GAVILYTE G [Concomitant]
     Active Substance: POLYETHYLENE GLYCOL 3350\POTASSIUM CHLORIDE\SODIUM BICARBONATE\SODIUM CHLORIDE\SODIUM SULFATE
  17. LANTUS [Concomitant]
     Active Substance: INSULIN GLARGINE
  18. MAGNESIUM OXIDE. [Concomitant]
     Active Substance: MAGNESIUM OXIDE
  19. VITAMIN B1 [Concomitant]
     Active Substance: THIAMINE HYDROCHLORIDE
  20. ONDANSETRON [Concomitant]
     Active Substance: ONDANSETRON

REACTIONS (1)
  - Cardiac failure [Unknown]
